FAERS Safety Report 20421787 (Version 1)
Quarter: 2022Q1

REPORT INFORMATION
  Report Type: Spontaneous
  Country: US (occurrence: US)
  Receive Date: 20220203
  Receipt Date: 20220203
  Transmission Date: 20220423
  Serious: No
  Sender: FDA-Public Use
  Company Number: US-FOUNDATIONCB-2021-US-015679

PATIENT
  Age: 69 Year
  Sex: Female

DRUGS (10)
  1. ALAVERT ALLERGY [Suspect]
     Active Substance: LORATADINE
     Indication: Rhinorrhoea
     Dosage: 1 TABLET TWICE A DAY
     Route: 048
     Dates: start: 20210714
  2. IRON [Concomitant]
     Active Substance: IRON
  3. DOXYCYCLINE [Concomitant]
     Active Substance: DOXYCYCLINE
  4. VITAMIN D [Concomitant]
     Active Substance: VITAMIN D NOS
  5. LUNESTA [Concomitant]
     Active Substance: ESZOPICLONE
  6. CARAFATE [Concomitant]
     Active Substance: SUCRALFATE
  7. LISINOPRIL [Concomitant]
     Active Substance: LISINOPRIL
  8. REPATHA [Concomitant]
     Active Substance: EVOLOCUMAB
  9. SERTRALINE [Concomitant]
     Active Substance: SERTRALINE HYDROCHLORIDE
  10. VITAMIN B12 [Concomitant]
     Active Substance: CYANOCOBALAMIN

REACTIONS (2)
  - Drug effect less than expected [Not Recovered/Not Resolved]
  - Intentional product misuse [Recovered/Resolved]

NARRATIVE: CASE EVENT DATE: 20210714
